APPROVED DRUG PRODUCT: FUROSEMIDE
Active Ingredient: FUROSEMIDE
Strength: 10MG/ML
Dosage Form/Route: INJECTABLE;INJECTION
Application: A072080 | Product #001
Applicant: HOSPIRA INC
Approved: Aug 13, 1991 | RLD: No | RS: No | Type: DISCN